FAERS Safety Report 5031025-3 (Version None)
Quarter: 2006Q2

REPORT INFORMATION
  Report Type: 
  Country: None (occurrence: None)
  Receive Date: 20060621
  Receipt Date: 20060524
  Transmission Date: 20061013
  Serious: No
  Sender: FDA-Public Use
  Company Number: US-GLAXOSMITHKLINE-A0606795A

PATIENT
  Age: 56 Year
  Sex: Female

DRUGS (15)
  1. FLOVENT [Suspect]
     Indication: ASTHMA
     Dosage: 2PUFF TWICE PER DAY
     Route: 055
     Dates: start: 20051201
  2. LEVOXYL [Concomitant]
  3. TOPROL-XL [Concomitant]
  4. FOLIC ACID [Concomitant]
  5. CITRACAL [Concomitant]
  6. MAGNESIUM [Concomitant]
  7. MULTI-VITAMIN [Concomitant]
  8. ZOLOFT [Concomitant]
  9. DIGESTIVE ENZYMES [Concomitant]
  10. CLARITIN [Concomitant]
  11. METHOTREXATE [Concomitant]
  12. ENBREL [Concomitant]
  13. FISH OIL [Concomitant]
  14. BIOFLAVONOIDS [Concomitant]
  15. ESTER-C [Concomitant]

REACTIONS (1)
  - TONGUE DISORDER [None]
